FAERS Safety Report 7493128-3 (Version None)
Quarter: 2011Q2

REPORT INFORMATION
  Report Type: 
  Country: None (occurrence: None)
  Receive Date: 20110520
  Receipt Date: 20110510
  Transmission Date: 20111010
  Serious: Yes (Other)
  Sender: FDA-Public Use
  Company Number: FR-JNJFOC-20110505574

PATIENT
  Sex: Female

DRUGS (5)
  1. OMEPRAZOLE [Concomitant]
     Route: 065
  2. DOXORUBICIN HCL [Suspect]
     Indication: OVARIAN CANCER
     Route: 042
     Dates: start: 20101223
  3. DOXORUBICIN HCL [Suspect]
     Route: 042
     Dates: start: 20110119
  4. CLONAZEPAM [Concomitant]
     Route: 065
  5. ATARAX [Concomitant]
     Route: 065

REACTIONS (1)
  - INTERTRIGO [None]
